FAERS Safety Report 14562782 (Version 2)
Quarter: 2018Q2

REPORT INFORMATION
  Report Type: Report from Study
  Country: DE (occurrence: DE)
  Receive Date: 20180222
  Receipt Date: 20180625
  Transmission Date: 20180711
  Serious: Yes (Death, Hospitalization, Disabling, Other)
  Sender: FDA-Public Use
  Company Number: DE-BAYER-2018-033942

PATIENT
  Age: 93 Year
  Sex: Female
  Weight: 54 kg

DRUGS (4)
  1. PANTOZOL [Concomitant]
     Active Substance: PANTOPRAZOLE SODIUM
  2. ASPIRIN. [Suspect]
     Active Substance: ASPIRIN
  3. STEROFUNDIN [Concomitant]
     Active Substance: CALCIUM CHLORIDE\MAGNESIUM CHLORIDE\POTASSIUM CHLORIDE\SODIUM ACETATE\SODIUM CHLORIDE
  4. RIVAROXABAN [Suspect]
     Active Substance: RIVAROXABAN
     Dosage: 15 MG, QD

REACTIONS (9)
  - Acute kidney injury [Fatal]
  - Myocardial infarction [Recovered/Resolved with Sequelae]
  - Epilepsy [None]
  - Troponin I increased [None]
  - Disturbance in attention [None]
  - Death [Fatal]
  - Sepsis [Fatal]
  - Infection [None]
  - Hypertension [None]

NARRATIVE: CASE EVENT DATE: 20170307
